FAERS Safety Report 22326620 (Version 1)
Quarter: 2023Q2

REPORT INFORMATION
  Report Type: Other
  Country: None (occurrence: CN)
  Receive Date: 20230516
  Receipt Date: 20230516
  Transmission Date: 20230721
  Serious: Yes (Life-Threatening)
  Sender: FDA-Public Use
  Company Number: CN-B.Braun Medical Inc.-2141542

PATIENT
  Age: 23 Year
  Sex: Female

DRUGS (10)
  1. MANNITOL [Suspect]
     Active Substance: MANNITOL
     Indication: Infection
  2. TACROLIMUS [Concomitant]
     Active Substance: TACROLIMUS
  3. METHYLPREDNISOLONE [Concomitant]
     Active Substance: METHYLPREDNISOLONE
  4. VORICONAZOLE [Suspect]
     Active Substance: VORICONAZOLE
  5. CEFOPERAZONE\SULBACTAM [Suspect]
     Active Substance: CEFOPERAZONE\SULBACTAM
  6. VANCOMYCIN [Suspect]
     Active Substance: VANCOMYCIN
  7. LEVOFLOXACIN [Suspect]
     Active Substance: LEVOFLOXACIN
  8. ACYCLOVIR [Suspect]
     Active Substance: ACYCLOVIR
  9. AVIBACTAM SODIUM\CEFTAZIDIME [Suspect]
     Active Substance: AVIBACTAM SODIUM\CEFTAZIDIME
  10. AMIKACIN [Suspect]
     Active Substance: AMIKACIN

REACTIONS (1)
  - Drug ineffective [Unknown]
